FAERS Safety Report 14599560 (Version 1)
Quarter: 2018Q1

REPORT INFORMATION
  Report Type: Report from Study
  Country: SK (occurrence: SK)
  Receive Date: 20180305
  Receipt Date: 20180305
  Transmission Date: 20180509
  Serious: Yes (Hospitalization)
  Sender: FDA-Public Use
  Company Number: PHHY2017SK058602

PATIENT
  Age: 71 Year
  Sex: Male
  Weight: 86.5 kg

DRUGS (4)
  1. FUROSEMID [Concomitant]
     Active Substance: FUROSEMIDE
     Dosage: 187.5 MG, UNK
     Route: 065
     Dates: start: 20170430
  2. FUROSEMID [Concomitant]
     Active Substance: FUROSEMIDE
     Indication: CARDIAC FAILURE CHRONIC
     Dosage: 125 MG, UNK
     Route: 065
     Dates: start: 20170421
  3. ENTRESTO [Suspect]
     Active Substance: SACUBITRIL\VALSARTAN
     Indication: CARDIAC FAILURE CHRONIC
     Dosage: 50 MG(24/26 MG), BID
     Route: 048
     Dates: start: 20170202, end: 20170421
  4. DIGITALIS [Suspect]
     Active Substance: DIGITALIS
     Indication: CARDIAC FAILURE CHRONIC
     Dosage: 0.25 UNK, UNK
     Route: 065
     Dates: start: 20071030

REACTIONS (3)
  - Electrolyte imbalance [Recovering/Resolving]
  - Renal impairment [Recovering/Resolving]
  - Diarrhoea [Recovering/Resolving]

NARRATIVE: CASE EVENT DATE: 20170327
